FAERS Safety Report 15119233 (Version 2)
Quarter: 2018Q3

REPORT INFORMATION
  Report Type: Spontaneous
  Country: IL (occurrence: IL)
  Receive Date: 20180709
  Receipt Date: 20180809
  Transmission Date: 20181010
  Serious: Yes (Other)
  Sender: FDA-Public Use
  Company Number: IL-009507513-1806ISR012423

PATIENT
  Age: 66 Year
  Sex: Male
  Weight: 78 kg

DRUGS (3)
  1. ESMERON [Suspect]
     Active Substance: ROCURONIUM BROMIDE
     Dosage: 50 MG , ADDITIONAL 20 MG AFTER TWO MINUTES, ADDITIONAL 20 MG AFTER ABOUT 20 MINUTES
  2. ESMERON [Suspect]
     Active Substance: ROCURONIUM BROMIDE
     Dosage: 50 MG , ADDITIONAL 20 MG AFTER TWO MINUTES, ADDITIONAL 20 MG AFTER ABOUT 20 MINUTES
  3. ESMERON [Suspect]
     Active Substance: ROCURONIUM BROMIDE
     Dosage: 50 MG , ADDITIONAL 20 MG AFTER TWO MINUTES, ADDITIONAL 20 MG AFTER ABOUT 20 MINUTES

REACTIONS (2)
  - Drug ineffective [Unknown]
  - Aspiration [Unknown]
